FAERS Safety Report 6926118-7 (Version None)
Quarter: 2010Q3

REPORT INFORMATION
  Report Type: 
  Country: None (occurrence: None)
  Receive Date: 20100816
  Receipt Date: 20100810
  Transmission Date: 20110219
  Serious: Yes (Hospitalization, Other)
  Sender: FDA-Public Use
  Company Number: US-BAYER-US-2005-017808

PATIENT
  Age: 64 Year
  Sex: Female
  Weight: 82 kg

DRUGS (27)
  1. CLIMARA [Suspect]
     Indication: HORMONE REPLACEMENT THERAPY
     Dosage: UNK MG/D, CONT
     Route: 062
     Dates: start: 19990101, end: 20000101
  2. PREMPRO [Suspect]
     Indication: HOT FLUSH
     Dosage: UNK, UNK
     Dates: start: 19980101, end: 19990701
  3. PREMARIN [Suspect]
     Indication: HOT FLUSH
     Dosage: UNK, UNK
     Dates: start: 19600101, end: 20010101
  4. PREMARIN [Suspect]
     Dosage: UNK, UNK
     Dates: start: 19990101
  5. PROVERA [Suspect]
     Indication: HOT FLUSH
     Dosage: UNK, UNK
     Dates: start: 19600101, end: 19980101
  6. PROVERA [Suspect]
     Dosage: UNK, UNK
     Dates: start: 19990101, end: 20010101
  7. MEDROXYPROGESTERONE ACETATE [Suspect]
     Indication: HOT FLUSH
     Dosage: 5 MG, UNK
     Dates: start: 19990901, end: 20000901
  8. ACTIVELLA [Suspect]
     Indication: HOT FLUSH
     Dosage: UNK, UNK
     Dates: start: 20020101, end: 20030701
  9. NIASPAN [Concomitant]
     Indication: BLOOD CHOLESTEROL INCREASED
     Dosage: UNIT DOSE: 1000 MG
     Route: 048
     Dates: start: 19950101
  10. LIPITOR [Concomitant]
     Indication: BLOOD CHOLESTEROL INCREASED
     Dosage: UNIT DOSE: 80 MG
     Route: 048
  11. LIPITOR [Concomitant]
     Dosage: UNIT DOSE: 40 MG
     Route: 048
     Dates: start: 19950101
  12. TOPROL-XL [Concomitant]
     Indication: CARDIAC DISORDER
     Dosage: UNIT DOSE: 50 MG
     Route: 048
     Dates: start: 19950101
  13. ZETIA [Concomitant]
     Indication: BLOOD CHOLESTEROL INCREASED
     Dosage: UNIT DOSE: 10 MG
     Route: 048
     Dates: start: 19950101
  14. ASPIRIN [Concomitant]
     Indication: CARDIOVASCULAR EVENT PROPHYLAXIS
     Dosage: UNIT DOSE: 325 MG
     Route: 048
     Dates: start: 19950101
  15. SYNTHROID [Concomitant]
     Indication: HYPOTHYROIDISM
     Dosage: TOTAL DAILY DOSE: 75 ?G  UNIT DOSE: 75 ?G
     Route: 048
     Dates: start: 19900101
  16. ZOLOFT [Concomitant]
     Indication: DEPRESSION
     Dosage: UNK, UNK
     Dates: start: 19900101
  17. COMBIPATCH [Concomitant]
  18. CENTRUM SILVER [Concomitant]
     Route: 048
  19. CALCIUM [Concomitant]
     Dosage: TOTAL DAILY DOSE: 1200 MG  UNIT DOSE: 600 MG
     Route: 048
  20. GLUCOSAMINE [Concomitant]
     Dosage: 1500 COMPLEX ORAL
     Route: 048
  21. PROZAC [Concomitant]
     Route: 048
  22. PROZAC [Concomitant]
     Route: 048
  23. DETROL LA [Concomitant]
     Dosage: UNIT DOSE: 4 MG
     Route: 048
  24. ARIMIDEX [Concomitant]
     Dosage: UNIT DOSE: 1 MG
     Route: 048
  25. VITAMIN E [Concomitant]
     Dosage: 1 CAPSULE PER DAY
     Route: 048
  26. FOSAMAX [Concomitant]
     Dosage: UNIT DOSE: 70 MG
     Route: 048
  27. XANAX [Concomitant]
     Dosage: UNIT DOSE: 0.25 MG
     Route: 048

REACTIONS (5)
  - BREAST CANCER FEMALE [None]
  - BREAST INFECTION [None]
  - DEFORMITY [None]
  - MARITAL PROBLEM [None]
  - PAIN [None]
